FAERS Safety Report 12472279 (Version 2)
Quarter: 2016Q3

REPORT INFORMATION
  Report Type: Spontaneous
  Country: JP (occurrence: JP)
  Receive Date: 20160616
  Receipt Date: 20160718
  Transmission Date: 20161109
  Serious: No
  Sender: FDA-Public Use
  Company Number: JP-LEO PHARMA-242575

PATIENT
  Sex: Female

DRUGS (2)
  1. ETRETINATE [Suspect]
     Active Substance: ETRETINATE
     Indication: PUSTULAR PSORIASIS
  2. DAIVOBET [Suspect]
     Active Substance: BETAMETHASONE DIPROPIONATE\CALCIPOTRIENE
     Indication: RASH PUSTULAR
     Route: 061
     Dates: start: 20160421, end: 20160602

REACTIONS (3)
  - Product use issue [Unknown]
  - Blood potassium increased [Recovered/Resolved]
  - Renal impairment [Unknown]
